FAERS Safety Report 4730473-6 (Version None)
Quarter: 2005Q3

REPORT INFORMATION
  Report Type: 
  Country: None (occurrence: None)
  Receive Date: 20050801
  Receipt Date: 20050706
  Transmission Date: 20060218
  Serious: Yes (Hospitalization)
  Sender: FDA-Public Use
  Company Number: BR-BRISTOL-MYERS SQUIBB COMPANY-13039508

PATIENT
  Age: 52 Year
  Sex: Female

DRUGS (7)
  1. CETUXIMAB [Suspect]
     Indication: NON-SMALL CELL LUNG CANCER
     Dosage: MOST RECENT INFUSION 04-JUL-05 (2ND INFUSION).
     Route: 041
     Dates: start: 20050627
  2. CISPLATIN [Suspect]
     Indication: NON-SMALL CELL LUNG CANCER
     Dosage: FIRST INFUSION 27-JUN-05.
     Route: 042
     Dates: start: 20050627
  3. VINORELBINE [Suspect]
     Indication: NON-SMALL CELL LUNG CANCER
     Dosage: 2ND AND MOST RECENT INFUSION GIVEN ON 04-JUL-05.
     Route: 042
     Dates: start: 20050627
  4. ATENOLOL [Suspect]
  5. HYDROCHLOROTHIAZIDE [Suspect]
  6. DICLOFENAC SODIUM [Concomitant]
  7. HEPARIN [Concomitant]

REACTIONS (1)
  - HYPOTENSION [None]
